FAERS Safety Report 7232953-0 (Version None)
Quarter: 2011Q1

REPORT INFORMATION
  Report Type: 
  Country: None (occurrence: None)
  Receive Date: 20110106
  Receipt Date: 20101223
  Transmission Date: 20110831
  Serious: Yes (Other)
  Sender: FDA-Public Use
  Company Number: GB-1184516

PATIENT

DRUGS (1)
  1. NEVANAC [Suspect]
     Indication: POSTOPERATIVE CARE
     Dosage: OPHTHALMIC
     Route: 047
     Dates: start: 20101216

REACTIONS (3)
  - CORNEAL DISORDER [None]
  - CORNEAL ABRASION [None]
  - EYE PAIN [None]
